FAERS Safety Report 5150212-7 (Version None)
Quarter: 2006Q4

REPORT INFORMATION
  Report Type: 
  Country: None (occurrence: None)
  Receive Date: 20061114
  Receipt Date: 20061103
  Transmission Date: 20070319
  Serious: Yes (Life-Threatening, Hospitalization)
  Sender: FDA-Public Use
  Company Number: US-AMGEN-STX199083

PATIENT
  Age: 55 Year
  Sex: Male

DRUGS (7)
  1. ENBREL [Suspect]
     Indication: DRUG USE FOR UNKNOWN INDICATION
  2. DECADRON [Concomitant]
  3. HEPARIN [Concomitant]
  4. REGLAN [Concomitant]
  5. LEVAQUIN [Concomitant]
  6. VANCOMYCIN [Concomitant]
  7. VICODIN [Concomitant]

REACTIONS (3)
  - HYPOGLYCAEMIA [None]
  - METABOLIC ACIDOSIS [None]
  - SEPSIS [None]
